FAERS Safety Report 4552117-9 (Version None)
Quarter: 2004Q4

REPORT INFORMATION
  Report Type: 
  Country: None (occurrence: None)
  Receive Date: 20041217
  Receipt Date: 20041018
  Transmission Date: 20050328
  Serious: No
  Sender: FDA-Public Use
  Company Number: 2004-BP-10113BP

PATIENT
  Age: 68 Year
  Sex: Male

DRUGS (4)
  1. SPIRIVA [Suspect]
     Indication: CHRONIC OBSTRUCTIVE AIRWAYS DISEASE
     Dosage: 18 MCG (18 MCG); IH
     Route: 055
     Dates: start: 20041015
  2. SPIRIVA [Suspect]
  3. ALBUTEROL [Concomitant]
  4. AMOXICILLIN [Concomitant]

REACTIONS (4)
  - ASTHENIA [None]
  - HEART RATE INCREASED [None]
  - OXYGEN SATURATION DECREASED [None]
  - TREMOR [None]
